FAERS Safety Report 7687281-6 (Version None)
Quarter: 2011Q3

REPORT INFORMATION
  Report Type: 
  Country: None (occurrence: None)
  Receive Date: 20110816
  Receipt Date: 20110812
  Transmission Date: 20111222
  Serious: Yes (Other)
  Sender: FDA-Public Use
  Company Number: US-PFIZER INC-2011186207

PATIENT
  Sex: Male
  Weight: 104 kg

DRUGS (14)
  1. XANAX [Suspect]
     Indication: ANXIETY
     Dosage: 0.5 MG, 3X/DAY
     Route: 048
  2. ZOLOFT [Suspect]
     Indication: DEPRESSION
  3. ACETYLSALICYLIC ACID [Concomitant]
     Indication: ANTICOAGULANT THERAPY
  4. LYRICA [Suspect]
     Indication: ARTHRITIS
  5. ZOLOFT [Suspect]
     Indication: ANXIETY
     Dosage: 100 MG, DAILY
  6. ATENOLOL [Concomitant]
     Indication: BLOOD PRESSURE ABNORMAL
  7. ACETYLSALICYLIC ACID [Concomitant]
     Indication: BLOOD PRESSURE ABNORMAL
     Dosage: 325 MG, DAILY
     Dates: start: 20070101
  8. LASIX [Concomitant]
     Indication: DIURETIC THERAPY
  9. XANAX [Suspect]
     Indication: HYPERTENSION
  10. ZOCOR [Concomitant]
     Indication: BLOOD CHOLESTEROL ABNORMAL
     Dosage: 40 MG, DAILY
     Dates: start: 20080101
  11. LYRICA [Suspect]
     Indication: FIBROMYALGIA
     Dosage: 100 MG, 2X/DAY
     Dates: start: 20091101
  12. LYRICA [Suspect]
     Indication: NEUROPATHY PERIPHERAL
  13. ATENOLOL [Concomitant]
     Indication: CARDIAC DISORDER
     Dosage: 50 MG, 2X/DAY
  14. LASIX [Concomitant]
     Indication: HYPERTENSION
     Dosage: 20 MG, 3X/WEEK

REACTIONS (10)
  - ARTHRITIS [None]
  - DEVICE OCCLUSION [None]
  - CHEST PAIN [None]
  - FIBROMYALGIA [None]
  - NEUROPATHY PERIPHERAL [None]
  - CATHETERISATION CARDIAC [None]
  - HYPERTENSION [None]
  - DEPRESSION [None]
  - AORTIC ANEURYSM [None]
  - ANXIETY [None]
